FAERS Safety Report 9358904 (Version 1)
Quarter: 2013Q2

REPORT INFORMATION
  Report Type: Spontaneous
  Country: PT (occurrence: PT)
  Receive Date: 20130620
  Receipt Date: 20130620
  Transmission Date: 20140414
  Serious: Yes (Other)
  Sender: FDA-Public Use
  Company Number: PT-009507513-1204USA04311

PATIENT
  Age: 32 Year
  Sex: Female

DRUGS (7)
  1. ISENTRESS [Suspect]
     Indication: HIV INFECTION
     Dosage: 400+400-2XDAY
     Route: 048
     Dates: start: 20110519
  2. DARUNAVIR [Concomitant]
     Indication: HIV INFECTION
     Dosage: 800 MG, QD
     Route: 048
     Dates: start: 20110519
  3. TENOFOVIR [Concomitant]
     Indication: HIV INFECTION
     Dosage: 300 MG, QD
     Route: 048
     Dates: start: 20110519
  4. ZIDOVUDINE [Concomitant]
     Indication: HIV INFECTION
     Dosage: 500 MG, QD
     Route: 048
     Dates: start: 20120302
  5. RITONAVIR [Concomitant]
     Indication: HIV INFECTION
     Dosage: 100 MG, QD
     Route: 048
     Dates: start: 20110519
  6. TRUVADA [Concomitant]
     Indication: HIV INFECTION
     Dosage: 200+300-1XDAY
  7. DARUNAVIR (+) RITONAVIR [Concomitant]
     Indication: HIV INFECTION
     Dosage: 800+100

REACTIONS (2)
  - Caesarean section [Unknown]
  - Exposure during pregnancy [Unknown]
